FAERS Safety Report 7704859-1 (Version None)
Quarter: 2011Q3

REPORT INFORMATION
  Report Type: 
  Country: None (occurrence: None)
  Receive Date: 20110823
  Receipt Date: 20110809
  Transmission Date: 20111222
  Serious: Yes (Other)
  Sender: FDA-Public Use
  Company Number: US-UCBSA-038942

PATIENT
  Age: 70 Year
  Sex: Male

DRUGS (4)
  1. POLYETHYLENE GLYCOL [Suspect]
  2. MIRALAX [Suspect]
     Indication: CONSTIPATION
     Dosage: 17 G QPM
     Route: 048
  3. HEART MEDICATION [Concomitant]
  4. DIURETICS [Concomitant]

REACTIONS (1)
  - RECTAL HAEMORRHAGE [None]
